FAERS Safety Report 4628397-8 (Version None)
Quarter: 2005Q2

REPORT INFORMATION
  Report Type: 
  Country: None (occurrence: None)
  Receive Date: 20050401
  Receipt Date: 20050321
  Transmission Date: 20051028
  Serious: Yes (Hospitalization)
  Sender: FDA-Public Use
  Company Number: 2005UW00627

PATIENT
  Age: 79 Year
  Sex: Female
  Weight: 79.8331 kg

DRUGS (5)
  1. CRESTOR [Suspect]
     Dosage: 10 MG DAILY PO
     Route: 048
     Dates: start: 20040101, end: 20040101
  2. COUMADIN [Concomitant]
  3. LANTUS [Concomitant]
  4. SPIRONOLACTONE [Concomitant]
  5. TORSEMIDE [Concomitant]

REACTIONS (4)
  - ASTHENIA [None]
  - DECUBITUS ULCER [None]
  - MYOPATHY [None]
  - SEPSIS [None]
